FAERS Safety Report 6689174-X (Version None)
Quarter: 2010Q2

REPORT INFORMATION
  Report Type: 
  Country: None (occurrence: None)
  Receive Date: 20100420
  Receipt Date: 20100406
  Transmission Date: 20101027
  Serious: Yes (Other)
  Sender: FDA-Public Use
  Company Number: FR-GENENTECH-300625

PATIENT
  Sex: Female

DRUGS (4)
  1. LUCENTIS [Suspect]
     Indication: CHOROIDAL NEOVASCULARISATION
     Dosage: UNK
     Route: 031
     Dates: start: 20070101
  2. LUCENTIS [Suspect]
     Dosage: UNK
     Route: 031
     Dates: start: 20070101
  3. LUCENTIS [Suspect]
     Dosage: UNK
     Route: 031
     Dates: start: 20090601
  4. LUCENTIS [Suspect]
     Dosage: UNK
     Route: 031
     Dates: start: 20091201

REACTIONS (5)
  - CHOROIDAL NEOVASCULARISATION [None]
  - CONJUNCTIVITIS [None]
  - SCOTOMA [None]
  - VISION BLURRED [None]
  - VISUAL ACUITY REDUCED [None]
